FAERS Safety Report 8727100 (Version 2)
Quarter: 2015Q2

REPORT INFORMATION
  Report Type: Report from Study
  Country: US (occurrence: US)
  Receive Date: 20120816
  Receipt Date: 20150407
  Transmission Date: 20150821
  Serious: Yes (Death, Hospitalization, Other)
  Sender: FDA-Public Use
  Company Number: US-ROCHE-1101314

PATIENT
  Sex: Female

DRUGS (6)
  1. NITROGLYCERINE [Concomitant]
     Active Substance: NITROGLYCERIN
     Route: 041
  2. ACTIVASE [Suspect]
     Active Substance: ALTEPLASE
     Route: 040
  3. ACTIVASE [Suspect]
     Active Substance: ALTEPLASE
     Indication: ACUTE MYOCARDIAL INFARCTION
     Route: 040
  4. ASPIRIN. [Concomitant]
     Active Substance: ASPIRIN
     Route: 048
  5. HEPARIN [Concomitant]
     Active Substance: HEPARIN SODIUM
     Route: 042
  6. HEPARIN [Concomitant]
     Active Substance: HEPARIN SODIUM
     Dosage: OVER 2-3 MIN
     Route: 042

REACTIONS (6)
  - Pulse absent [Unknown]
  - Blood pressure decreased [Fatal]
  - Dyspnoea [Unknown]
  - Cardiac arrest [Unknown]
  - Electrocardiogram ST segment elevation [Unknown]
  - Chest pain [Unknown]
